FAERS Safety Report 10423200 (Version 4)
Quarter: 2015Q2

REPORT INFORMATION
  Report Type: Spontaneous
  Country: US (occurrence: None)
  Receive Date: 20140722
  Receipt Date: 20150420
  Transmission Date: 20150821
  Serious: Yes (Other)
  Sender: FDA-Public Use
  Company Number: AEGR000548

PATIENT
  Age: 69 Year
  Sex: Female
  Weight: 78.5 kg

DRUGS (10)
  1. JUXTAPID [Suspect]
     Active Substance: LOMITAPIDE MESYLATE
     Indication: TYPE IIA HYPERLIPIDAEMIA
     Route: 048
     Dates: start: 20140602
  2. NEXIUM [Concomitant]
     Active Substance: ESOMEPRAZOLE MAGNESIUM
  3. FISH OIL (FISH OIL) [Concomitant]
     Active Substance: FISH OIL
  4. TRAMADOL (TRAMADOL HYDROCHLORIDE) [Concomitant]
     Active Substance: TRAMADOL HYDROCHLORIDE
  5. OMEGA 3 (FISH OIL) [Concomitant]
     Active Substance: OMEGA-3 FATTY ACIDS
  6. ZYRTEC [Concomitant]
     Active Substance: CETIRIZINE HYDROCHLORIDE
  7. EXCEDRIN P.M. (MEPYRAMINE MALEATE, PARACETAMOL)? [Concomitant]
  8. CITALOPRAM (CITALOPRAM HYDROBROMIDE) [Concomitant]
  9. AZOR (AMLODIPINE BESILATE, OLMESARTAN MEDOXOMIL) [Concomitant]
  10. VITAMIN D (COLECALCIFEROL) [Concomitant]

REACTIONS (3)
  - Weight decreased [None]
  - Abdominal pain upper [None]
  - Diarrhoea [None]

NARRATIVE: CASE EVENT DATE: 201406
